FAERS Safety Report 9097007 (Version 1)
Quarter: 2013Q1

REPORT INFORMATION
  Report Type: Spontaneous
  Country: GB (occurrence: None)
  Receive Date: 20130123
  Receipt Date: 20130123
  Transmission Date: 20140127
  Serious: Yes (Other)
  Sender: FDA-Public Use
  Company Number: GER/UKI/13/0027453

PATIENT
  Age: 35 Year
  Sex: Male

DRUGS (2)
  1. ATORVASTATIN (ATORVASTATIN) [Suspect]
     Indication: BLOOD CHOLESTEROL INCREASED
     Route: 048
     Dates: start: 20100609, end: 20120216
  2. SIMVASTATIN (SIMVASTATIN) [Suspect]
     Indication: BLOOD CHOLESTEROL INCREASED
     Route: 048
     Dates: start: 20090212, end: 20100416

REACTIONS (2)
  - Spermatozoa abnormal [None]
  - Miscarriage of partner [None]
